FAERS Safety Report 11629710 (Version 1)
Quarter: 2015Q4

REPORT INFORMATION
  Report Type: Spontaneous
  Country: US (occurrence: US)
  Receive Date: 20151014
  Receipt Date: 20151014
  Transmission Date: 20160304
  Serious: Yes (Hospitalization)
  Sender: FDA-Public Use
  Company Number: US-PFIZER INC-2015338400

PATIENT
  Age: 11 Year
  Sex: Female
  Weight: 48.73 kg

DRUGS (1)
  1. RAPAMUNE [Suspect]
     Active Substance: SIROLIMUS
     Indication: CYSTIC LYMPHANGIOMA
     Dosage: 1.5 MG, 2X/DAY (0.5 MG THREE TABLET TWICE A DAY)
     Route: 048
     Dates: start: 2013

REACTIONS (3)
  - Product use issue [Unknown]
  - Chest pain [Unknown]
  - Respiratory distress [Unknown]
